FAERS Safety Report 12485874 (Version 1)
Quarter: 2016Q2

REPORT INFORMATION
  Report Type: Spontaneous
  Country: US (occurrence: US)
  Receive Date: 20160621
  Receipt Date: 20160621
  Transmission Date: 20160815
  Serious: No
  Sender: FDA-Public Use
  Company Number: US-ROCHE-1677967

PATIENT
  Age: 90 Year
  Sex: Male
  Weight: 77.7 kg

DRUGS (1)
  1. GAZYVA [Suspect]
     Active Substance: OBINUTUZUMAB
     Indication: CHRONIC LYMPHOCYTIC LEUKAEMIA
     Route: 042
     Dates: start: 20151215, end: 20151215

REACTIONS (5)
  - Swelling [Recovered/Resolved]
  - Discomfort [Recovered/Resolved]
  - Tenderness [Recovered/Resolved]
  - Injection site extravasation [Recovered/Resolved]
  - Extravasation [Recovered/Resolved]

NARRATIVE: CASE EVENT DATE: 20151215
